FAERS Safety Report 15243665 (Version 2)
Quarter: 2018Q4

REPORT INFORMATION
  Report Type: Spontaneous
  Country: JP (occurrence: JP)
  Receive Date: 20180806
  Receipt Date: 20181004
  Transmission Date: 20190204
  Serious: Yes (Other)
  Sender: FDA-Public Use
  Company Number: JP-TEVA-2018-JP-938442

PATIENT
  Age: 7 Decade
  Sex: Female
  Weight: 56.6 kg

DRUGS (3)
  1. PACLITAXEL. [Suspect]
     Active Substance: PACLITAXEL
     Indication: LUNG ADENOCARCINOMA STAGE IV
     Dosage: 200 MG/M2
     Route: 065
     Dates: start: 201511
  2. CARBOPLATIN. [Suspect]
     Active Substance: CARBOPLATIN
     Indication: LUNG ADENOCARCINOMA STAGE IV
     Dosage: 400 MG/M2
     Route: 065
     Dates: start: 201511
  3. GEFITINIB. [Suspect]
     Active Substance: GEFITINIB
     Indication: LUNG ADENOCARCINOMA STAGE IV
     Dosage: 250 MG EVERY OTHER DAY
     Route: 065
     Dates: start: 201601

REACTIONS (2)
  - Decreased appetite [Unknown]
  - Peripheral nerve injury [Unknown]
